FAERS Safety Report 4489287-7 (Version None)
Quarter: 2004Q4

REPORT INFORMATION
  Report Type: 
  Country: None (occurrence: None)
  Receive Date: 20041026
  Receipt Date: 20041013
  Transmission Date: 20050328
  Serious: Yes (Death)
  Sender: FDA-Public Use
  Company Number: 2004AP04842

PATIENT
  Age: 84 Year
  Sex: Male

DRUGS (3)
  1. CASODEX [Suspect]
     Indication: PROSTATE CANCER
     Dosage: 80 MG DAILY PO
     Route: 048
     Dates: start: 20030911
  2. ZOLADEX [Suspect]
     Indication: PROSTATE CANCER
     Dosage: 10.8 MG Q3MO SQ
     Route: 058
     Dates: start: 20031215, end: 20040531
  3. ZOLADEX [Suspect]
     Indication: PROSTATE CANCER
     Dosage: 3.6 MG Q4WK SQ
     Route: 058
     Dates: start: 20030925, end: 20031215

REACTIONS (10)
  - ANOREXIA [None]
  - CACHEXIA [None]
  - CARDIOPULMONARY FAILURE [None]
  - DIARRHOEA [None]
  - MALIGNANT NEOPLASM PROGRESSION [None]
  - METASTASES TO KIDNEY [None]
  - METASTASES TO LIVER [None]
  - METASTASES TO LUNG [None]
  - PROSTATE CANCER [None]
  - THERAPY NON-RESPONDER [None]
